FAERS Safety Report 4461322-1 (Version None)
Quarter: 2004Q3

REPORT INFORMATION
  Report Type: 
  Country: None (occurrence: None)
  Receive Date: 20040928
  Receipt Date: 20040826
  Transmission Date: 20050211
  Serious: Yes (Other)
  Sender: FDA-Public Use
  Company Number: JP-MERCK-0409USA00834

PATIENT
  Age: 41 Year
  Sex: Male

DRUGS (3)
  1. PULMICORT [Concomitant]
     Indication: ASTHMA
     Route: 055
     Dates: start: 20040703
  2. SINGULAIR [Suspect]
     Indication: ASTHMA
     Route: 048
     Dates: start: 20040626, end: 20040826
  3. SEREVENT [Concomitant]
     Indication: ASTHMA
     Route: 055
     Dates: start: 20031214

REACTIONS (1)
  - PLATELET COUNT DECREASED [None]
